FAERS Safety Report 6370799-6 (Version None)
Quarter: 2009Q3

REPORT INFORMATION
  Report Type: 
  Country: None (occurrence: None)
  Receive Date: 20090923
  Receipt Date: 20070619
  Transmission Date: 20100115
  Serious: Yes (Other)
  Sender: FDA-Public Use
  Company Number: US-ASTRAZENECA-2006UW24631

PATIENT
  Age: 17617 Day
  Sex: Male
  Weight: 81.6 kg

DRUGS (12)
  1. SEROQUEL [Suspect]
     Dosage: 400 - 600 MG AT NIGHT
     Route: 048
     Dates: start: 20041216
  2. ABILIFY [Concomitant]
  3. ZYPREXA [Concomitant]
  4. OTHER PSYCHIATRIC MEDICATION [Concomitant]
     Dates: start: 20060305, end: 20061229
  5. GLYBURIDE [Concomitant]
     Dates: start: 20040720
  6. GLUCOPHAGE [Concomitant]
     Dates: start: 20020307
  7. TOLAZAMIDE [Concomitant]
  8. LISINOPRIL [Concomitant]
     Dates: start: 20040811
  9. LOVASTATIN [Concomitant]
     Dates: start: 20010924
  10. ATENOLOL [Concomitant]
     Dates: start: 20010924
  11. TRAZODONE [Concomitant]
  12. AMITRIPTYLINE [Concomitant]
     Dosage: STRENGTH 25 -50 MG, DOSE - 25 MG AT NIGHT

REACTIONS (3)
  - DIABETES MELLITUS [None]
  - DIABETIC COMA [None]
  - KETOACIDOSIS [None]
